FAERS Safety Report 5074089-3 (Version None)
Quarter: 2006Q3

REPORT INFORMATION
  Report Type: 
  Country: None (occurrence: None)
  Receive Date: 20060808
  Receipt Date: 20050927
  Transmission Date: 20061208
  Serious: No
  Sender: FDA-Public Use
  Company Number: US-AMGEN-KDL152669

PATIENT
  Age: 77 Year
  Sex: Male
  Weight: 101.7 kg

DRUGS (8)
  1. PROCRIT [Suspect]
     Indication: MYELODYSPLASTIC SYNDROME
     Route: 058
     Dates: start: 19961101
  2. PREDNISONE [Concomitant]
  3. LIDOCAINE [Concomitant]
  4. LASIX [Concomitant]
  5. POTASSIUM [Concomitant]
  6. GLYBURIDE [Concomitant]
  7. BLOOD CELLS, PACKED HUMAN [Concomitant]
  8. VALTREX [Concomitant]

REACTIONS (2)
  - ASTHENIA [None]
  - HYPOKINESIA [None]
